FAERS Safety Report 9625032 (Version 1)
Quarter: 2013Q4

REPORT INFORMATION
  Report Type: Spontaneous
  Country: US (occurrence: US)
  Receive Date: 20131016
  Receipt Date: 20131016
  Transmission Date: 20140711
  Serious: No
  Sender: FDA-Public Use
  Company Number: US-009507513-1310USA005635

PATIENT
  Age: 71 Year
  Sex: Male

DRUGS (6)
  1. INVANZ [Suspect]
     Indication: OSTEOMYELITIS
     Dosage: 1 G, QD, INJECTION AV
     Route: 042
  2. INVANZ [Suspect]
     Indication: URINARY TRACT INFECTION
  3. PRILOSEC [Suspect]
     Dosage: UNK
  4. NIACIN [Concomitant]
     Dosage: UNK
  5. LIPITOR [Concomitant]
     Dosage: UNK
  6. KETOCONAZOLE [Concomitant]
     Dosage: UNK
     Dates: end: 20131010

REACTIONS (2)
  - Liver function test abnormal [Not Recovered/Not Resolved]
  - Unevaluable event [Not Recovered/Not Resolved]
